FAERS Safety Report 4315839-0 (Version None)
Quarter: 2004Q1

REPORT INFORMATION
  Report Type: 
  Country: None (occurrence: None)
  Receive Date: 20040310
  Receipt Date: 20040223
  Transmission Date: 20041129
  Serious: Yes (Death)
  Sender: FDA-Public Use
  Company Number: 000978

PATIENT
  Age: 78 Year
  Sex: Male

DRUGS (7)
  1. ZEBETA(BISOPROLOL FUMARATE) ZEBATA(BISOPROLOL FUMARATE) TABLET, 5MG [Suspect]
     Dosage: ORAL
     Route: 048
     Dates: start: 20030720, end: 20030920
  2. TENORMINE (ATENOLOL) 100MG [Suspect]
     Dosage: ORAL
     Route: 048
     Dates: end: 20030720
  3. LASIX [Concomitant]
  4. ZESTRIL [Concomitant]
  5. ADALAT [Concomitant]
  6. OMEPRAZOLE [Concomitant]
  7. FLIXOTAIDE (FLUTICASONE PROPIONATE) [Concomitant]

REACTIONS (2)
  - INTERSTITIAL LUNG DISEASE [None]
  - PULMONARY FIBROSIS [None]
